FAERS Safety Report 6315575-5 (Version None)
Quarter: 2009Q3

REPORT INFORMATION
  Report Type: 
  Country: None (occurrence: None)
  Receive Date: 20090818
  Receipt Date: 20090804
  Transmission Date: 20100115
  Serious: Yes (Death, Life-Threatening, Disabling)
  Sender: FDA-Public Use
  Company Number: 2009PV000064

PATIENT
  Age: 14 Year
  Sex: Male
  Weight: 46 kg

DRUGS (12)
  1. DEPOCYT [Suspect]
     Indication: METASTASES TO MENINGES
     Dosage: 50 MG; ; INTH
     Route: 037
     Dates: start: 20080523, end: 20080704
  2. IDARUBICIN HCL [Suspect]
  3. FLUDARABINE PHOSPHATE [Suspect]
  4. CYTARABINE [Suspect]
  5. IDARUBICIN HCL [Concomitant]
  6. FLUDARABINE PHOSPHATE [Concomitant]
  7. CYTARABINE [Concomitant]
  8. PHENOBARBITAL [Concomitant]
  9. PHENYTOIN SODIUM [Concomitant]
  10. CLONAZEPAM [Concomitant]
  11. DIAZEPAM [Concomitant]
  12. DEXAMETHASONE [Concomitant]

REACTIONS (5)
  - BLINDNESS [None]
  - CENTRAL NERVOUS SYSTEM LESION [None]
  - ELECTROENCEPHALOGRAM ABNORMAL [None]
  - ENCEPHALOPATHY [None]
  - GRAND MAL CONVULSION [None]
